FAERS Safety Report 8112410-X (Version None)
Quarter: 2012Q1

REPORT INFORMATION
  Report Type: 
  Country: None (occurrence: None)
  Receive Date: 20120203
  Receipt Date: 20120131
  Transmission Date: 20120608
  Serious: Yes (Death)
  Sender: FDA-Public Use
  Company Number: JP-SANOFI-AVENTIS-2011SA079364

PATIENT
  Age: 77 Year
  Sex: Male
  Weight: 73.4 kg

DRUGS (11)
  1. AMARYL [Concomitant]
     Route: 048
     Dates: start: 20091218
  2. HEPARIN [Concomitant]
     Dosage: DOSE:10000 UNIT(S)
     Route: 042
     Dates: start: 20091013, end: 20091013
  3. LANSOPRAZOLE [Concomitant]
     Route: 048
     Dates: start: 20091012
  4. PIOGLITAZONE [Concomitant]
     Route: 048
     Dates: start: 20091103
  5. ALL OTHER THERAPEUTIC PRODUCTS [Concomitant]
     Route: 048
     Dates: start: 20091208
  6. PLAVIX [Suspect]
     Dosage: MAINTENANCE TREATMENT
     Route: 065
     Dates: start: 20091012
  7. ASPIRIN [Concomitant]
     Route: 048
     Dates: start: 20091012
  8. LASIX [Concomitant]
     Route: 048
     Dates: start: 20091022
  9. LIPITOR [Concomitant]
     Route: 048
     Dates: start: 20091013
  10. EPLERENONE [Concomitant]
     Route: 048
     Dates: start: 20091022
  11. HEPARIN [Concomitant]
     Dosage: DOSE:10000 UNIT(S)
     Route: 042
     Dates: start: 20091020, end: 20091020

REACTIONS (3)
  - MULTI-ORGAN FAILURE [None]
  - INTERSTITIAL LUNG DISEASE [None]
  - DYSPNOEA [None]
